FAERS Safety Report 21560177 (Version 1)
Quarter: 2022Q4

REPORT INFORMATION
  Report Type: Spontaneous
  Country: US (occurrence: None)
  Receive Date: 20221104
  Receipt Date: 20221104
  Transmission Date: 20230113
  Serious: No
  Sender: FDA-Public Use
  Company Number: None

PATIENT

DRUGS (2)
  1. FERROUS SULFATE [Suspect]
     Active Substance: FERROUS SULFATE
  2. FERROUS SULFATE [Suspect]
     Active Substance: FERROUS SULFATE

REACTIONS (2)
  - Product dispensing error [None]
  - Incorrect dose administered [None]
